FAERS Safety Report 10143770 (Version 1)
Quarter: 2014Q2

REPORT INFORMATION
  Report Type: Spontaneous
  Country: US (occurrence: US)
  Receive Date: 20140430
  Receipt Date: 20140430
  Transmission Date: 20141212
  Serious: No
  Sender: FDA-Public Use
  Company Number: US-B.I. PHARMACEUTICALS,INC./RIDGEFIELD-2014-BI-18470BP

PATIENT
  Age: 73 Year
  Sex: Female
  Weight: 54 kg

DRUGS (5)
  1. SPIRIVA [Suspect]
     Indication: CHRONIC OBSTRUCTIVE PULMONARY DISEASE
     Dosage: 18 MCG
     Route: 055
     Dates: start: 20140328
  2. NACL [Concomitant]
     Indication: CHRONIC OBSTRUCTIVE PULMONARY DISEASE
     Dosage: (INHALATION SOLUTION) STRENGTH: 7%;
     Route: 055
  3. PULMICORT [Concomitant]
     Indication: CHRONIC OBSTRUCTIVE PULMONARY DISEASE
     Dosage: 4 PUF
     Route: 055
  4. PREDNISONE [Concomitant]
     Route: 048
  5. MUCINEX [Concomitant]
     Route: 048

REACTIONS (5)
  - Chronic obstructive pulmonary disease [Unknown]
  - Bronchitis [Unknown]
  - Lung disorder [Not Recovered/Not Resolved]
  - Laryngitis [Not Recovered/Not Resolved]
  - Dysphonia [Not Recovered/Not Resolved]
